FAERS Safety Report 9071209 (Version 2)
Quarter: 2013Q1

REPORT INFORMATION
  Report Type: Spontaneous
  Country: CA (occurrence: CA)
  Receive Date: 20130129
  Receipt Date: 20130307
  Transmission Date: 20140127
  Serious: Yes (Hospitalization, Other)
  Sender: FDA-Public Use
  Company Number: CA-ROCHE-1184387

PATIENT
  Age: 61 None
  Sex: Female
  Weight: 84.09 kg

DRUGS (2)
  1. NEUPOGEN [Suspect]
     Indication: PRODUCT USED FOR UNKNOWN INDICATION
     Route: 065
  2. PROLIA [Suspect]
     Indication: OSTEOPOROSIS
     Route: 065

REACTIONS (9)
  - Breast cancer [Not Recovered/Not Resolved]
  - Back pain [Unknown]
  - Pyrexia [Unknown]
  - Influenza [Unknown]
  - Nasopharyngitis [Unknown]
  - Viral infection [Unknown]
  - Cough [Unknown]
  - Nausea [Unknown]
  - Fall [Unknown]
